FAERS Safety Report 9959144 (Version 1)
Quarter: 2014Q1

REPORT INFORMATION
  Report Type: Report from Study
  Country: US (occurrence: US)
  Receive Date: 20140305
  Receipt Date: 20140305
  Transmission Date: 20141002
  Serious: Yes (Hospitalization)
  Sender: FDA-Public Use
  Company Number: US-ABBVIE-13P-163-1104413-00

PATIENT
  Age: 33 Year
  Sex: Female
  Weight: 89.89 kg

DRUGS (3)
  1. HUMIRA [Suspect]
     Indication: ANKYLOSING SPONDYLITIS
     Dates: start: 201104, end: 20120821
  2. FOLIC ACID [Concomitant]
     Indication: ANKYLOSING SPONDYLITIS
     Dates: start: 201104, end: 201208
  3. SUMATRIPTAN [Concomitant]
     Indication: ANKYLOSING SPONDYLITIS
     Dates: start: 2011, end: 201204

REACTIONS (5)
  - Leukaemia [Recovered/Resolved]
  - Fatigue [Recovered/Resolved]
  - Contusion [Recovered/Resolved]
  - Nasopharyngitis [Recovered/Resolved]
  - Epistaxis [Recovered/Resolved]
